FAERS Safety Report 12995964 (Version 1)
Quarter: 2016Q4

REPORT INFORMATION
  Report Type: Spontaneous
  Country: US (occurrence: US)
  Receive Date: 20161202
  Receipt Date: 20161202
  Transmission Date: 20170207
  Serious: Yes (Death, Hospitalization)
  Sender: FDA-Public Use
  Company Number: US-ALLERGAN-1678910US

PATIENT
  Age: 76 Year
  Sex: Female

DRUGS (1)
  1. LINZESS [Suspect]
     Active Substance: LINACLOTIDE
     Indication: CONSTIPATION
     Dosage: 145 ?G, SINGLE
     Route: 048

REACTIONS (3)
  - Abdominal pain [Unknown]
  - Sepsis [Fatal]
  - Large intestine perforation [Unknown]

NARRATIVE: CASE EVENT DATE: 2016
